FAERS Safety Report 6965068-7 (Version None)
Quarter: 2010Q3

REPORT INFORMATION
  Report Type: 
  Country: None (occurrence: None)
  Receive Date: 20100903
  Receipt Date: 20100830
  Transmission Date: 20110219
  Serious: Yes (Life-Threatening, Other)
  Sender: FDA-Public Use
  Company Number: US-ASTRAZENECA-2010SE30626

PATIENT
  Age: 12322 Day
  Sex: Male
  Weight: 91.2 kg

DRUGS (7)
  1. SEROQUEL XR [Suspect]
     Indication: MAJOR DEPRESSION
     Route: 048
     Dates: start: 20100101, end: 20100301
  2. SEROQUEL XR [Suspect]
     Indication: BIPOLAR DISORDER
     Route: 048
     Dates: start: 20100101, end: 20100301
  3. SEROQUEL XR [Suspect]
     Route: 048
     Dates: start: 20100301, end: 20100623
  4. SEROQUEL XR [Suspect]
     Route: 048
     Dates: start: 20100301, end: 20100623
  5. ZOLOFT [Concomitant]
     Indication: DEPRESSION
  6. DEPAKOTE [Concomitant]
     Indication: BIPOLAR DISORDER
  7. BUSPAR [Concomitant]
     Indication: ANXIETY

REACTIONS (2)
  - DEHYDRATION [None]
  - LOSS OF CONSCIOUSNESS [None]
